FAERS Safety Report 14498505 (Version 1)
Quarter: 2018Q1

REPORT INFORMATION
  Report Type: Spontaneous
  Country: US (occurrence: US)
  Receive Date: 20180207
  Receipt Date: 20180207
  Transmission Date: 20180509
  Serious: No
  Sender: FDA-Public Use
  Company Number: US-ELI_LILLY_AND_COMPANY-US201802001510

PATIENT
  Age: 44 Year
  Sex: Female

DRUGS (1)
  1. HUMATROPE [Suspect]
     Active Substance: SOMATROPIN
     Indication: GROWTH HORMONE DEFICIENCY
     Dosage: 6 MG, UNKNOWN
     Route: 058
     Dates: start: 20180130

REACTIONS (2)
  - Carpal tunnel syndrome [Unknown]
  - Lethargy [Unknown]

NARRATIVE: CASE EVENT DATE: 20180130
